FAERS Safety Report 24450229 (Version 2)
Quarter: 2024Q4

REPORT INFORMATION
  Report Type: Spontaneous
  Country: US (occurrence: US)
  Receive Date: 20241017
  Receipt Date: 20241031
  Transmission Date: 20250115
  Serious: Yes (Life-Threatening, Hospitalization)
  Sender: TEVA
  Company Number: US-TEVA-VS-3253264

PATIENT
  Age: 32 Year
  Sex: Male

DRUGS (2)
  1. EPINEPHRINE [Suspect]
     Active Substance: EPINEPHRINE
     Indication: Cardiogenic shock
     Dosage: RECEIVED HIGH DOSE
     Route: 065
  2. NOREPINEPHRINE [Suspect]
     Active Substance: NOREPINEPHRINE\NOREPINEPHRINE BITARTRATE
     Indication: Cardiogenic shock
     Dosage: RECEIVED HIGH DOSE
     Route: 065

REACTIONS (1)
  - Drug ineffective [Unknown]
